FAERS Safety Report 10096779 (Version 5)
Quarter: 2014Q2

REPORT INFORMATION
  Report Type: Report from Study
  Country: JP (occurrence: JP)
  Receive Date: 20140422
  Receipt Date: 20140606
  Transmission Date: 20141212
  Serious: Yes (Hospitalization)
  Sender: FDA-Public Use
  Company Number: JP-EISAI INC-E2007-01631-CLI-JP

PATIENT
  Age: 27 Year
  Sex: Male
  Weight: 63 kg

DRUGS (17)
  1. E2007 (PERAMPANEL) [Suspect]
     Indication: PARTIAL SEIZURES
     Dosage: CORE STUDY-DOUBLE BLIND
     Route: 048
     Dates: start: 20121003, end: 20130312
  2. E2007 (PERAMPANEL) [Suspect]
     Dosage: CONVERSION PERIOD
     Route: 048
     Dates: start: 20130313, end: 20130423
  3. E2007 (PERAMPANEL) [Suspect]
     Route: 048
     Dates: start: 20130424, end: 20130506
  4. E2007 (PERAMPANEL) [Suspect]
     Route: 048
     Dates: start: 20130507
  5. DEPAKENE R [Concomitant]
  6. GABAPEN [Concomitant]
  7. E KEPPRA [Concomitant]
  8. LAMISIL [Concomitant]
  9. TAMIFLU [Concomitant]
  10. CALONAL [Concomitant]
  11. PL [Concomitant]
  12. MEDICON [Concomitant]
  13. SENEGA SYRUP [Concomitant]
  14. MEZEC [Concomitant]
  15. APRICOT KERNEL WATER [Concomitant]
  16. ASVERIN SYRUP [Concomitant]
  17. ELTACIN [Concomitant]

REACTIONS (2)
  - Urinary retention [Recovered/Resolved]
  - Urinary tract infection [Recovered/Resolved]
